FAERS Safety Report 16833421 (Version 1)
Quarter: 2019Q3

REPORT INFORMATION
  Report Type: Spontaneous
  Country: US (occurrence: US)
  Receive Date: 20190920
  Receipt Date: 20190920
  Transmission Date: 20191005
  Serious: No
  Sender: FDA-Public Use
  Company Number: US-BAYER-2019-172761

PATIENT
  Age: 69 Year
  Sex: Female
  Weight: 52 kg

DRUGS (4)
  1. MIRALAX [Suspect]
     Active Substance: POLYETHYLENE GLYCOL 3350
     Indication: FAECES HARD
     Dosage: 1 DF
     Route: 048
     Dates: start: 201909
  2. MIRALAX [Suspect]
     Active Substance: POLYETHYLENE GLYCOL 3350
     Indication: FAECES HARD
     Dosage: 1 DF
     Route: 048
     Dates: start: 201909
  3. MIRALAX [Suspect]
     Active Substance: POLYETHYLENE GLYCOL 3350
     Indication: FAECES HARD
     Dosage: 1 DF
     Route: 048
     Dates: start: 201810
  4. LINZESS [Concomitant]
     Active Substance: LINACLOTIDE
     Dosage: UNK

REACTIONS (4)
  - Incorrect dose administered [Unknown]
  - Adverse drug reaction [Unknown]
  - Off label use [Unknown]
  - Product use in unapproved indication [Unknown]

NARRATIVE: CASE EVENT DATE: 201810
